FAERS Safety Report 14666286 (Version 4)
Quarter: 2018Q2

REPORT INFORMATION
  Report Type: Spontaneous
  Country: JP (occurrence: JP)
  Receive Date: 20180321
  Receipt Date: 20180626
  Transmission Date: 20180711
  Serious: Yes (Death, Hospitalization, Other)
  Sender: FDA-Public Use
  Company Number: JP-BRISTOL-MYERS SQUIBB COMPANY-BMS-2018-026298

PATIENT
  Age: 30 Year
  Sex: Female

DRUGS (1)
  1. OPDIVO [Suspect]
     Active Substance: NIVOLUMAB
     Indication: NON-SMALL CELL LUNG CANCER
     Dosage: 120 MG, UNK
     Route: 041
     Dates: start: 20160615, end: 20160629

REACTIONS (4)
  - Prescribed overdose [Unknown]
  - Off label use [Unknown]
  - Malignant neoplasm progression [Fatal]
  - Renal disorder [Recovering/Resolving]

NARRATIVE: CASE EVENT DATE: 20160615
